FAERS Safety Report 10202014 (Version 3)
Quarter: 2014Q2

REPORT INFORMATION
  Report Type: Report from Study
  Country: CO (occurrence: CO)
  Receive Date: 20140528
  Receipt Date: 20140612
  Transmission Date: 20141212
  Serious: Yes (Death, Hospitalization)
  Sender: FDA-Public Use
  Company Number: CO-BRISTOL-MYERS SQUIBB COMPANY-20791208

PATIENT
  Age: 51 Year
  Sex: Female

DRUGS (1)
  1. YERVOY [Suspect]
     Indication: METASTATIC MALIGNANT MELANOMA
     Dosage: 5 AMP EVERY 21 DAYS
     Route: 042
     Dates: start: 20140314

REACTIONS (5)
  - Acute hepatic failure [Fatal]
  - Malaise [Unknown]
  - Localised oedema [Unknown]
  - Oedema peripheral [Unknown]
  - Hepatic lesion [Unknown]
